FAERS Safety Report 25637276 (Version 1)
Quarter: 2025Q3

REPORT INFORMATION
  Report Type: Spontaneous
  Country: JP (occurrence: JP)
  Receive Date: 20250804
  Receipt Date: 20250804
  Transmission Date: 20251021
  Serious: Yes (Other)
  Sender: ASTELLAS
  Company Number: JP-ASTELLAS-2023JP000552

PATIENT
  Age: 73 Year
  Sex: Male

DRUGS (19)
  1. PADCEV [Suspect]
     Active Substance: ENFORTUMAB VEDOTIN-EJFV
     Indication: Bladder cancer recurrent
     Route: 042
  2. PADCEV [Suspect]
     Active Substance: ENFORTUMAB VEDOTIN-EJFV
     Route: 042
  3. Mosapride tablet [Concomitant]
     Indication: Product used for unknown indication
     Route: 065
  4. MAGNESIUM OXIDE [Concomitant]
     Active Substance: MAGNESIUM OXIDE
     Indication: Product used for unknown indication
     Route: 065
  5. METHYLCOBALAMIN [Concomitant]
     Active Substance: METHYLCOBALAMIN
     Indication: Product used for unknown indication
     Route: 065
  6. LANSOPRAZOLE [Concomitant]
     Active Substance: LANSOPRAZOLE
     Indication: Product used for unknown indication
     Route: 065
  7. Limaprost alfadex tablet [Concomitant]
     Indication: Product used for unknown indication
     Route: 065
  8. Biofermin powder [Concomitant]
     Indication: Product used for unknown indication
     Route: 065
  9. METHOTREXATE [Concomitant]
     Active Substance: METHOTREXATE
     Indication: Bladder cancer recurrent
     Route: 065
  10. METHOTREXATE [Concomitant]
     Active Substance: METHOTREXATE
     Route: 065
  11. VINBLASTINE [Concomitant]
     Active Substance: VINBLASTINE
     Indication: Bladder cancer recurrent
     Route: 065
  12. VINBLASTINE [Concomitant]
     Active Substance: VINBLASTINE
     Route: 065
  13. DOXORUBICIN [Concomitant]
     Active Substance: DOXORUBICIN
     Indication: Bladder cancer recurrent
     Route: 065
  14. DOXORUBICIN [Concomitant]
     Active Substance: DOXORUBICIN
     Route: 065
  15. CISPLATIN [Concomitant]
     Active Substance: CISPLATIN
     Indication: Bladder cancer
     Route: 065
  16. CISPLATIN [Concomitant]
     Active Substance: CISPLATIN
     Indication: Bladder cancer recurrent
     Route: 065
  17. CISPLATIN [Concomitant]
     Active Substance: CISPLATIN
     Route: 065
  18. AVELUMAB [Concomitant]
     Active Substance: AVELUMAB
     Indication: Bladder cancer recurrent
     Route: 065
  19. CLOBETASOL PROPIONATE [Concomitant]
     Active Substance: CLOBETASOL PROPIONATE
     Indication: Dermatitis bullous
     Route: 065

REACTIONS (2)
  - Dermatitis bullous [Recovered/Resolved]
  - Dermatitis bullous [Recovered/Resolved]
